FAERS Safety Report 12383795 (Version 2)
Quarter: 2016Q2

REPORT INFORMATION
  Report Type: Spontaneous
  Country: US (occurrence: US)
  Receive Date: 20160519
  Receipt Date: 20160527
  Transmission Date: 20160815
  Serious: Yes (Life-Threatening, Hospitalization, Other)
  Sender: FDA-Public Use
  Company Number: US-APOTEX-2016AP008514

PATIENT
  Age: 15 Year
  Sex: Female

DRUGS (1)
  1. BUPROPION HYDROCHLORIDE. [Suspect]
     Active Substance: BUPROPION HYDROCHLORIDE
     Indication: PRODUCT USED FOR UNKNOWN INDICATION
     Dosage: GREATER THAN 50, AND PERHAPS AS MANY AS 90
     Route: 048

REACTIONS (7)
  - Hypoxia [Recovering/Resolving]
  - Pulseless electrical activity [Recovering/Resolving]
  - Overdose [Recovering/Resolving]
  - Cardiomyopathy acute [Recovering/Resolving]
  - Acute kidney injury [Recovering/Resolving]
  - Epilepsy [Recovering/Resolving]
  - Pulmonary oedema [Unknown]
